FAERS Safety Report 20140197 (Version 1)
Quarter: 2021Q4

REPORT INFORMATION
  Report Type: Spontaneous
  Country: IT (occurrence: IT)
  Receive Date: 20211202
  Receipt Date: 20211202
  Transmission Date: 20220303
  Serious: Yes (Other)
  Sender: FDA-Public Use
  Company Number: None

PATIENT
  Age: 77 Year
  Sex: Female

DRUGS (7)
  1. OCTREOTIDE [Suspect]
     Active Substance: OCTREOTIDE
     Indication: Thymoma
     Dosage: 30 MG
     Route: 030
     Dates: start: 20211102, end: 20211102
  2. LUVION [Concomitant]
     Dosage: 100 MG
     Route: 048
  3. GLYBURIDE\METFORMIN HYDROCHLORIDE [Concomitant]
     Active Substance: GLYBURIDE\METFORMIN HYDROCHLORIDE
     Dosage: 1 DF , STRENGTH : 400 MG + 2,5 MG
     Route: 048
  4. APIDRA [Concomitant]
     Active Substance: INSULIN GLULISINE
     Dosage: 14 IU
     Route: 058
  5. LASIX [Concomitant]
     Active Substance: FUROSEMIDE
     Dosage: 25 MG
     Route: 048
  6. DEFLAZACORT [Concomitant]
     Active Substance: DEFLAZACORT
     Dosage: 30 MG
     Route: 048
  7. TENORMIN [Concomitant]
     Active Substance: ATENOLOL
     Dosage: 100 MG
     Route: 048

REACTIONS (7)
  - Eye irritation [Recovered/Resolved]
  - Hyperglycaemia [Recovered/Resolved]
  - Hyperhidrosis [Recovered/Resolved]
  - Abdominal pain [Recovered/Resolved]
  - Dizziness [Recovered/Resolved]
  - Lacrimation increased [Recovered/Resolved]
  - Back pain [Recovered/Resolved]

NARRATIVE: CASE EVENT DATE: 20211103
